FAERS Safety Report 10403045 (Version 1)
Quarter: 2014Q3

REPORT INFORMATION
  Report Type: Spontaneous
  Country: US (occurrence: US)
  Receive Date: 20140822
  Receipt Date: 20140822
  Transmission Date: 20150326
  Serious: Yes (Other)
  Sender: FDA-Public Use
  Company Number: US-B.I. PHARMACEUTICALS,INC./RIDGEFIELD-2014-BI-38445BP

PATIENT
  Age: 77 Year
  Sex: Female
  Weight: 61 kg

DRUGS (9)
  1. PRADAXA [Suspect]
     Active Substance: DABIGATRAN ETEXILATE MESYLATE
     Indication: ATRIAL FIBRILLATION
     Dosage: 300 MG
     Route: 065
     Dates: start: 20110418
  2. ACIPHEX [Concomitant]
     Active Substance: RABEPRAZOLE SODIUM
     Dosage: 20 MG
     Route: 048
     Dates: start: 201001
  3. DIGOXIN. [Concomitant]
     Active Substance: DIGOXIN
     Dosage: 0.1786 MG
     Route: 065
     Dates: start: 20091210
  4. VITAMIN D [Concomitant]
     Active Substance: CHOLECALCIFEROL
     Dosage: 6000 U
     Route: 065
     Dates: start: 20120518
  5. LEXAPRO [Concomitant]
     Active Substance: ESCITALOPRAM OXALATE
     Indication: DEPRESSION
     Route: 065
  6. SYMBICORT [Concomitant]
     Active Substance: BUDESONIDE\FORMOTEROL FUMARATE DIHYDRATE
     Dosage: STRENGTH: 160-4.5MCG/ACT, 1 TO 2 PUFFS
     Route: 065
     Dates: start: 20100215
  7. CARTIA XT [Concomitant]
     Active Substance: DILTIAZEM HYDROCHLORIDE
     Dosage: 120 MG
     Route: 048
     Dates: start: 20120301
  8. VERAMYST [Concomitant]
     Active Substance: FLUTICASONE FUROATE
     Dosage: FORMULATION: SPRAY; ROUTE: NOSTRIL; DOSE PER APPLICATION AND DAILY DOSE: 27.5 MCG/ SPRAY, 2 SPRAYS E
     Route: 050
     Dates: start: 20120619
  9. WELCHOL [Concomitant]
     Active Substance: COLESEVELAM HYDROCHLORIDE
     Dosage: 1250 MG
     Route: 065
     Dates: start: 20100505

REACTIONS (3)
  - Lower gastrointestinal haemorrhage [Recovered/Resolved]
  - Iron deficiency anaemia [Unknown]
  - Haematocrit decreased [Unknown]

NARRATIVE: CASE EVENT DATE: 20120716
